FAERS Safety Report 16403880 (Version 1)
Quarter: 2019Q3

REPORT INFORMATION
  Report Type: Spontaneous
  Country: US (occurrence: US)
  Receive Date: 20190606
  Receipt Date: 20190606
  Transmission Date: 20191004
  Serious: No
  Sender: FDA-Public Use
  Company Number: None

PATIENT
  Age: 76 Year
  Sex: Female
  Weight: 79.2 kg

DRUGS (1)
  1. LEVULAN KERASTICK [Suspect]
     Active Substance: AMINOLEVULINIC ACID HYDROCHLORIDE
     Indication: ACTINIC KERATOSIS
     Dosage: ?          OTHER FREQUENCY:ONCE;?
     Route: 003
     Dates: start: 20190425, end: 20190425

REACTIONS (4)
  - Toothache [None]
  - Scab [None]
  - Facial pain [None]
  - Swelling [None]

NARRATIVE: CASE EVENT DATE: 20190425
